FAERS Safety Report 7444899-3 (Version None)
Quarter: 2011Q2

REPORT INFORMATION
  Report Type: 
  Country: None (occurrence: None)
  Receive Date: 20110429
  Receipt Date: 20110426
  Transmission Date: 20111010
  Serious: No
  Sender: FDA-Public Use
  Company Number: FR-BRISTOL-MYERS SQUIBB COMPANY-15688922

PATIENT
  Age: 35 Year
  Sex: Female

DRUGS (11)
  1. IXEL [Concomitant]
  2. IMOVANE [Concomitant]
  3. TRIMEPRAZINE TARTRATE [Concomitant]
  4. CARDENSIEL [Concomitant]
  5. MEPRONIZINE [Concomitant]
  6. LIORESAL [Concomitant]
  7. ABILIFY [Suspect]
  8. TRIATEC [Concomitant]
  9. LAMICTAL [Concomitant]
  10. VALIUM [Concomitant]
  11. NEXIUM [Concomitant]

REACTIONS (1)
  - DRY MOUTH [None]
